FAERS Safety Report 16402394 (Version 3)
Quarter: 2019Q3

REPORT INFORMATION
  Report Type: Report from Study
  Country: US (occurrence: US)
  Receive Date: 20190607
  Receipt Date: 20190913
  Transmission Date: 20191004
  Serious: No
  Sender: FDA-Public Use
  Company Number: PHEH2019US023465

PATIENT
  Age: 23 Year
  Sex: Female

DRUGS (2)
  1. COSENTYX [Suspect]
     Active Substance: SECUKINUMAB
     Indication: PSORIASIS
     Dosage: 300 MG, AT WEEK 4
     Route: 058
  2. COSENTYX [Suspect]
     Active Substance: SECUKINUMAB
     Dosage: 300 MG, QMO
     Route: 058
     Dates: start: 20181210

REACTIONS (3)
  - Therapeutic product effect incomplete [Unknown]
  - Feeling hot [Unknown]
  - Psoriasis [Unknown]

NARRATIVE: CASE EVENT DATE: 20181210
